FAERS Safety Report 20773423 (Version 1)
Quarter: 2022Q2

REPORT INFORMATION
  Report Type: Spontaneous
  Country: TR (occurrence: TR)
  Receive Date: 20220502
  Receipt Date: 20220502
  Transmission Date: 20220721
  Serious: Yes (Hospitalization, Other)
  Sender: FDA-Public Use
  Company Number: TR-NATCOUSA-2022-NATCOUSA-000041

PATIENT
  Age: 8 Year
  Sex: Male
  Weight: 17 kg

DRUGS (3)
  1. TRIHEXYPHENIDYL HYDROCHLORIDE [Suspect]
     Active Substance: TRIHEXYPHENIDYL HYDROCHLORIDE
     Indication: Dystonia
  2. LEVODOPA [Suspect]
     Active Substance: LEVODOPA
     Indication: Dystonia
  3. DOMPERIDONE [Suspect]
     Active Substance: DOMPERIDONE
     Indication: Dystonia

REACTIONS (4)
  - Dystonia [Unknown]
  - Impaired quality of life [Unknown]
  - Anxiety [Unknown]
  - Therapeutic product effect incomplete [Unknown]
